FAERS Safety Report 16949179 (Version 1)
Quarter: 2019Q4

REPORT INFORMATION
  Report Type: Spontaneous
  Country: ES (occurrence: ES)
  Receive Date: 20191023
  Receipt Date: 20191023
  Transmission Date: 20200122
  Serious: Yes (Hospitalization)
  Sender: FDA-Public Use
  Company Number: ES-TEVA-2019-ES-1125069

PATIENT
  Age: 17 Year
  Sex: Female
  Weight: 33 kg

DRUGS (4)
  1. METILPREDNISOLONA NORMON 40 MG POLVO Y DISOLVENTE PARA SOLUCION INYECT [Concomitant]
     Indication: CROHN^S DISEASE
     Dosage: 40 MILLIGRAM, 1 CYCLICAL
     Route: 042
     Dates: start: 20190621
  2. IMUREL 50 MG COMPRIMIDOS RECUBIERTOS CON PELICULA , 50 COMPRIMIDOS [Suspect]
     Active Substance: AZATHIOPRINE
     Indication: CROHN^S DISEASE
     Dosage: 50 MILLIGRAM PER DAY
     Route: 048
     Dates: start: 20190619, end: 20190725
  3. RISPERIDONA (7201A) [Suspect]
     Active Substance: RISPERIDONE
     Indication: ATTENTION DEFICIT/HYPERACTIVITY DISORDER
     Dosage: 0.5 ML EVERY 12 HOURS
     Route: 048
     Dates: start: 20190430, end: 20190725
  4. INFLIXIMAB (1110A) [Suspect]
     Active Substance: INFLIXIMAB
     Indication: CROHN^S DISEASE
     Dosage: 165 MILLIGRAM, 1 CYCLICAL
     Route: 042
     Dates: start: 20190621

REACTIONS (1)
  - Pancreatitis acute [Recovered/Resolved]

NARRATIVE: CASE EVENT DATE: 20190720
